FAERS Safety Report 5302214-5 (Version None)
Quarter: 2007Q2

REPORT INFORMATION
  Report Type: 
  Country: None (occurrence: None)
  Receive Date: 20070412
  Receipt Date: 20070327
  Transmission Date: 20071010
  Serious: Yes (Hospitalization)
  Sender: FDA-Public Use
  Company Number: DSA_29715_2007

PATIENT
  Sex: Male

DRUGS (2)
  1. MONO-TILDIEM [Suspect]
     Dosage: DF , PO
     Route: 048
     Dates: start: 20060801, end: 20070131
  2. COAPROVEL [Suspect]
     Indication: HYPERTENSION
     Dosage: DF UNK PO
     Route: 048
     Dates: start: 20060801, end: 20070131

REACTIONS (5)
  - ASTHENIA [None]
  - GAIT DISTURBANCE [None]
  - INTERMITTENT CLAUDICATION [None]
  - MUSCLE SPASMS [None]
  - MYALGIA [None]
